FAERS Safety Report 16363287 (Version 3)
Quarter: 2019Q3

REPORT INFORMATION
  Report Type: Spontaneous
  Country: JP (occurrence: JP)
  Receive Date: 20190528
  Receipt Date: 20190820
  Transmission Date: 20191004
  Serious: Yes (Hospitalization, Other)
  Sender: FDA-Public Use
  Company Number: JP-ALLERGAN-1922155US

PATIENT
  Sex: Female

DRUGS (5)
  1. BOTOX [Suspect]
     Active Substance: ONABOTULINUMTOXINA
     Indication: MUSCLE SPASTICITY
  2. BOTOX [Suspect]
     Active Substance: ONABOTULINUMTOXINA
     Indication: MUSCLE SPASTICITY
     Dosage: 300 UNITS, SINGLE
     Route: 030
     Dates: start: 20180218, end: 20180218
  3. VOLTAREN [Concomitant]
     Active Substance: DICLOFENAC SODIUM
  4. OLMETEC [Concomitant]
     Active Substance: OLMESARTAN MEDOXOMIL
  5. ATROPINE SULFATE. [Concomitant]
     Active Substance: ATROPINE SULFATE

REACTIONS (2)
  - Fall [Unknown]
  - Spinal compression fracture [Unknown]

NARRATIVE: CASE EVENT DATE: 20190420
